FAERS Safety Report 11212009 (Version 2)
Quarter: 2015Q2

REPORT INFORMATION
  Report Type: Report from Study
  Country: IN (occurrence: IN)
  Receive Date: 20150623
  Receipt Date: 20150624
  Transmission Date: 20150821
  Serious: Yes (Death, Hospitalization)
  Sender: FDA-Public Use
  Company Number: IN-PFIZER INC-2015203401

PATIENT
  Age: 55 Year
  Sex: Male

DRUGS (2)
  1. MONOCEF [Suspect]
     Active Substance: CEPHALEXIN
     Indication: PNEUMONIA STREPTOCOCCAL
  2. DALACIN [Suspect]
     Active Substance: CLINDAMYCIN\CLINDAMYCIN PHOSPHATE
     Indication: PNEUMONIA STREPTOCOCCAL

REACTIONS (1)
  - Death [Fatal]
